FAERS Safety Report 18793614 (Version 1)
Quarter: 2021Q1

REPORT INFORMATION
  Report Type: Spontaneous
  Country: US (occurrence: US)
  Receive Date: 20210126
  Receipt Date: 20210126
  Transmission Date: 20210419
  Serious: No
  Sender: FDA-Public Use
  Company Number: None

PATIENT
  Sex: Male

DRUGS (1)
  1. TOBRAMYCIN INH SOLN 4ML AMPS 300MG/4ML TEVA PHARMACEUTICALS USA [Suspect]
     Active Substance: TOBRAMYCIN
     Indication: PRODUCT USED FOR UNKNOWN INDICATION
     Dosage: ?          OTHER ROUTE:INHALATION?
     Dates: start: 20210109

REACTIONS (3)
  - Tracheostomy [None]
  - Device intolerance [None]
  - Dysphonia [None]
